FAERS Safety Report 5082155-1 (Version None)
Quarter: 2006Q3

REPORT INFORMATION
  Report Type: 
  Country: None (occurrence: None)
  Receive Date: 20060817
  Receipt Date: 20060807
  Transmission Date: 20061208
  Serious: Yes (Hospitalization)
  Sender: FDA-Public Use
  Company Number: US-JNJFOC-20060801893

PATIENT
  Sex: Female
  Weight: 54.43 kg

DRUGS (18)
  1. FENTANYL [Suspect]
     Route: 062
  2. FENTANYL [Suspect]
     Indication: BACK PAIN
     Route: 062
  3. TYLENOL W/ CODEINE [Suspect]
     Indication: BACK PAIN
     Route: 048
  4. PREDNISONE [Suspect]
     Indication: PULMONARY TOXICITY
     Route: 048
  5. DEMEROL [Suspect]
     Indication: PULMONARY TOXICITY
  6. ZOLOFT [Suspect]
     Route: 048
  7. ZOLOFT [Suspect]
     Indication: DEPRESSION
     Route: 048
  8. ZOLOFT [Suspect]
     Indication: ANXIETY
     Route: 048
  9. FENTANYL [Suspect]
  10. TRAZODONE HCL [Concomitant]
     Indication: SLEEP DISORDER
     Route: 048
  11. THEOPHYLLINE [Concomitant]
     Route: 048
  12. SINGULAIR [Concomitant]
     Route: 048
  13. QUININE SULFATE [Concomitant]
     Indication: MUSCLE SPASMS
     Route: 048
  14. CYMBALTA [Concomitant]
     Route: 048
  15. ADVAIR DISKUS 100/50 [Concomitant]
     Route: 055
  16. ALBUTEROL [Concomitant]
     Route: 055
  17. XANAX [Concomitant]
     Indication: ANXIETY
     Route: 048
  18. COMBUNOX [Concomitant]
     Indication: PAIN
     Route: 048

REACTIONS (6)
  - ANXIETY [None]
  - BLOOD PRESSURE INCREASED [None]
  - CONVULSION [None]
  - DRUG INEFFECTIVE [None]
  - PRURITUS [None]
  - SOMNOLENCE [None]
